FAERS Safety Report 9413688 (Version 1)
Quarter: 2013Q3

REPORT INFORMATION
  Report Type: Spontaneous
  Country: None (occurrence: None)
  Receive Date: 20130708
  Receipt Date: 20130708
  Transmission Date: 20140515
  Serious: Yes (Other)
  Sender: FDA-Public Use
  Company Number: 08-AUR-02975

PATIENT
  Age: 40 Year
  Sex: Male

DRUGS (1)
  1. DIDANOSINE [Suspect]
     Indication: HIV INFECTION

REACTIONS (8)
  - Weight decreased [None]
  - Fatigue [None]
  - Lipoatrophy [None]
  - Mitochondrial toxicity [None]
  - Polyuria [None]
  - Polydipsia [None]
  - Blood sodium increased [None]
  - Blood potassium decreased [None]
